FAERS Safety Report 6401402-4 (Version None)
Quarter: 2009Q4

REPORT INFORMATION
  Report Type: 
  Country: None (occurrence: None)
  Receive Date: 20091015
  Receipt Date: 20070910
  Transmission Date: 20100525
  Serious: Yes (Disabling)
  Sender: FDA-Public Use
  Company Number: US-ASTRAZENECA-2006UW07686

PATIENT
  Sex: Male

DRUGS (11)
  1. SEROQUEL [Suspect]
     Dosage: 25 TO 400 MG (FLUCTUATION)
     Route: 048
     Dates: start: 20040210
  2. REMERON [Concomitant]
     Indication: SOMNOLENCE
     Route: 048
     Dates: start: 20050704
  3. LAMICTAL [Concomitant]
     Dosage: 25 TO 50 MG EVERY MORNING
     Route: 048
     Dates: start: 20050704
  4. KLONOPIN [Concomitant]
     Route: 048
     Dates: start: 20050704
  5. NORVASC [Concomitant]
     Route: 048
     Dates: start: 20050704
  6. LASIX [Concomitant]
     Route: 048
     Dates: start: 20050704
  7. ATROVENT [Concomitant]
     Route: 065
     Dates: start: 20050704
  8. THIAMINE HCL [Concomitant]
     Route: 048
     Dates: start: 20050627
  9. FOLATE [Concomitant]
     Route: 048
     Dates: start: 20050627
  10. MUCINEX [Concomitant]
     Route: 048
     Dates: start: 20060424
  11. DEPAKOTE ER [Concomitant]
     Dosage: 500 MG IN MORNING, 1000 MG IN EVENING
     Route: 048
     Dates: start: 20050210

REACTIONS (1)
  - ILL-DEFINED DISORDER [None]
